FAERS Safety Report 4622572-4 (Version None)
Quarter: 2005Q1

REPORT INFORMATION
  Report Type: 
  Country: None (occurrence: None)
  Receive Date: 20050325
  Receipt Date: 20050325
  Transmission Date: 20050727
  Serious: Yes (Hospitalization)
  Sender: FDA-Public Use
  Company Number: None

PATIENT
  Age: 58 Year
  Sex: Male
  Weight: 71.6683 kg

DRUGS (5)
  1. GEMCITABINE [Suspect]
     Indication: PANCREATIC CARCINOMA
     Dosage: 289MG   Q 2 WEEKS   INTRAVENOU
     Route: 042
     Dates: start: 20050308, end: 20050309
  2. IRINOTECAN [Suspect]
     Indication: PANCREATIC CARCINOMA
     Dosage: 200MG   Q 2 WEEKS   INTRAVENOU
     Route: 042
     Dates: start: 20050309, end: 20050310
  3. PROTONIX [Concomitant]
  4. MARINOL [Concomitant]
  5. PANCREASE [Concomitant]

REACTIONS (1)
  - GASTROINTESTINAL HAEMORRHAGE [None]
